FAERS Safety Report 8347795-2 (Version None)
Quarter: 2012Q2

REPORT INFORMATION
  Report Type: 
  Country: None (occurrence: None)
  Receive Date: 20120509
  Receipt Date: 20120202
  Transmission Date: 20120825
  Serious: Yes (Hospitalization)
  Sender: FDA-Public Use
  Company Number: US-GLAXOSMITHKLINE-A0964444A

PATIENT
  Age: 57 Year
  Sex: Female
  Weight: 56.2 kg

DRUGS (18)
  1. GABAPENTIN [Concomitant]
  2. ZOFRAN [Concomitant]
  3. TRENTAL [Concomitant]
  4. FLOLAN [Suspect]
     Indication: PULMONARY ARTERIAL HYPERTENSION
     Dosage: 27.7NGKM CONTINUOUS
     Route: 042
     Dates: start: 20111121
  5. AMBIEN [Concomitant]
  6. SENOKOT [Concomitant]
  7. AMARYL [Concomitant]
  8. ASPIRIN [Concomitant]
  9. PREDNISONE [Concomitant]
  10. MUCINEX [Concomitant]
  11. CALCIUM CARBONATE [Concomitant]
  12. LANTUS [Concomitant]
  13. VENTOLIN HFA [Concomitant]
  14. CALCIUM + MAGNESIUM + ZINC [Concomitant]
  15. TORSEMIDE [Concomitant]
  16. ACETAMINOPHEN [Concomitant]
  17. NITROSTAT [Concomitant]
  18. POTASSIUM CHLORIDE [Concomitant]

REACTIONS (8)
  - PALPITATIONS [None]
  - PNEUMONIA [None]
  - ASTHENIA [None]
  - FATIGUE [None]
  - INSOMNIA [None]
  - DIZZINESS POSTURAL [None]
  - HYPOTENSION [None]
  - DYSPNOEA [None]
